FAERS Safety Report 6583280-6 (Version None)
Quarter: 2010Q1

REPORT INFORMATION
  Report Type: 
  Country: None (occurrence: None)
  Receive Date: 20100216
  Receipt Date: 20100208
  Transmission Date: 20100710
  Serious: Yes (Hospitalization)
  Sender: FDA-Public Use
  Company Number: B0633012A

PATIENT
  Sex: Female
  Weight: 55 kg

DRUGS (6)
  1. ATARAX [Suspect]
     Dosage: 25MG PER DAY
     Route: 048
     Dates: start: 20091223, end: 20100103
  2. TRIFLUCAN [Suspect]
     Dosage: 50MG PER DAY
     Route: 048
     Dates: start: 20091223, end: 20100103
  3. TOLEXINE [Suspect]
     Indication: DRUG USE FOR UNKNOWN INDICATION
     Dosage: 1TAB PER DAY
     Route: 048
     Dates: start: 20100102, end: 20100103
  4. ZELITREX [Suspect]
     Dosage: 2TAB PER DAY
     Route: 048
     Dates: start: 20091223, end: 20100103
  5. LACTOBACILLUS [Concomitant]
  6. BETADINE [Concomitant]

REACTIONS (12)
  - BLEPHARITIS [None]
  - CHEILITIS [None]
  - CONJUNCTIVITIS [None]
  - DIARRHOEA [None]
  - GENERAL PHYSICAL HEALTH DETERIORATION [None]
  - IRON DEFICIENCY [None]
  - NIKOLSKY'S SIGN [None]
  - RASH [None]
  - RASH PAPULAR [None]
  - STEVENS-JOHNSON SYNDROME [None]
  - STOMATITIS [None]
  - VULVITIS [None]
